FAERS Safety Report 7956689-3 (Version None)
Quarter: 2011Q4

REPORT INFORMATION
  Report Type: 
  Country: None (occurrence: None)
  Receive Date: 20111205
  Receipt Date: 20111130
  Transmission Date: 20120403
  Serious: Yes (Other)
  Sender: FDA-Public Use
  Company Number: US-BAYER-2011-113046

PATIENT
  Sex: Female

DRUGS (1)
  1. CLIMARA [Suspect]
     Route: 062

REACTIONS (3)
  - FIBROMYALGIA [None]
  - SYSTEMIC LUPUS ERYTHEMATOSUS [None]
  - PRODUCT ADHESION ISSUE [None]
